FAERS Safety Report 7289942-X (Version None)
Quarter: 2011Q1

REPORT INFORMATION
  Report Type: 
  Country: None (occurrence: None)
  Receive Date: 20110214
  Receipt Date: 20110201
  Transmission Date: 20110831
  Serious: Yes (Hospitalization, Other)
  Sender: FDA-Public Use
  Company Number: US-JNJFOC-20110201563

PATIENT
  Age: 50 Year
  Sex: Male

DRUGS (11)
  1. FEXOFENADINE [Concomitant]
  2. ALISKIREN [Concomitant]
  3. INFLIXIMAB, RECOMBINANT [Suspect]
     Route: 042
  4. FENOFIBRATE [Concomitant]
  5. DULOXETIME HYDROCHLORIDE [Concomitant]
  6. MESALAMINE [Concomitant]
  7. INFLIXIMAB, RECOMBINANT [Suspect]
     Indication: CROHN'S DISEASE
     Route: 042
  8. MELOXICAM [Concomitant]
  9. MONTELUKAST SODIUM [Concomitant]
  10. ATORVASTATIN [Concomitant]
  11. ESOMEPRAZOLE [Concomitant]

REACTIONS (9)
  - JOINT ABSCESS [None]
  - LARYNGEAL INFLAMMATION [None]
  - CELLULITIS [None]
  - PSOAS ABSCESS [None]
  - SUBCUTANEOUS ABSCESS [None]
  - VENA CAVA THROMBOSIS [None]
  - EXTRADURAL ABSCESS [None]
  - SEPSIS [None]
  - STAPHYLOCOCCAL SEPSIS [None]
